FAERS Safety Report 14006551 (Version 2)
Quarter: 2017Q3

REPORT INFORMATION
  Report Type: Spontaneous
  Country: US (occurrence: US)
  Receive Date: 20170925
  Receipt Date: 20170927
  Transmission Date: 20171128
  Serious: No
  Sender: FDA-Public Use
  Company Number: US-009507513-1709USA007785

PATIENT
  Sex: Female

DRUGS (1)
  1. VYTORIN [Suspect]
     Active Substance: EZETIMIBE\SIMVASTATIN
     Dosage: UNK
     Route: 048

REACTIONS (9)
  - Product expiration date issue [Unknown]
  - Drug dispensing error [Unknown]
  - Product physical issue [Unknown]
  - Drug prescribing error [Unknown]
  - Product container issue [Unknown]
  - Product lot number issue [Unknown]
  - Drug interaction [Unknown]
  - Product label issue [Unknown]
  - Product identification number issue [Unknown]
